FAERS Safety Report 4360162-1 (Version None)
Quarter: 2004Q2

REPORT INFORMATION
  Report Type: 
  Country: None (occurrence: None)
  Receive Date: 20040518
  Receipt Date: 20040518
  Transmission Date: 20050107
  Serious: No
  Sender: FDA-Public Use
  Company Number: None

PATIENT
  Age: 40 Year
  Sex: Female
  Weight: 109.7705 kg

DRUGS (8)
  1. TAXOTERE [Suspect]
     Indication: BREAST CANCER STAGE II
     Dosage: 210 MG Q3W IV
     Route: 042
     Dates: start: 20011217
  2. VERAPAMIL [Concomitant]
  3. PAXIL [Concomitant]
  4. POTASSIUM [Concomitant]
  5. ULTRAM [Concomitant]
  6. IRON [Concomitant]
  7. TYLENOL [Concomitant]
  8. SENOKOT [Concomitant]

REACTIONS (2)
  - ATRIOVENTRICULAR BLOCK FIRST DEGREE [None]
  - PALPITATIONS [None]
